FAERS Safety Report 6858033-1 (Version None)
Quarter: 2010Q2

REPORT INFORMATION
  Report Type: 
  Country: None (occurrence: None)
  Receive Date: 20100526
  Receipt Date: 20090508
  Transmission Date: 20101027
  Serious: Yes (Other)
  Sender: FDA-Public Use
  Company Number: 240647

PATIENT
  Age: 56 Year
  Sex: Female
  Weight: 68.9 kg

DRUGS (10)
  1. ACTIVELLA [Suspect]
     Indication: HORMONE REPLACEMENT THERAPY
     Dates: start: 20020516, end: 20030120
  2. MEDROXYPROGESTERONE ACETATE [Concomitant]
  3. PROMETRIUM [Concomitant]
  4. ESTRATAB [Concomitant]
  5. ORTHO-PREFEST (ESTRADIOL, NORGESTIMATE) [Concomitant]
  6. CELEBREX [Concomitant]
  7. PREVACID [Concomitant]
  8. PROTONIX [Concomitant]
  9. ACTONEL [Concomitant]
  10. EVISTA [Concomitant]

REACTIONS (1)
  - BREAST CANCER [None]
